FAERS Safety Report 4823817-8 (Version None)
Quarter: 2005Q4

REPORT INFORMATION
  Report Type: 
  Country: None (occurrence: None)
  Receive Date: 20051107
  Receipt Date: 20051027
  Transmission Date: 20060501
  Serious: Yes (Other)
  Sender: FDA-Public Use
  Company Number: 2005125383

PATIENT
  Sex: Male

DRUGS (3)
  1. VFEND [Suspect]
     Indication: ILL-DEFINED DISORDER
     Dosage: SEE IMAGE
     Route: 048
     Dates: start: 20050830, end: 20050830
  2. VFEND [Suspect]
     Indication: ILL-DEFINED DISORDER
     Dosage: SEE IMAGE
     Route: 048
     Dates: start: 20050909, end: 20050909
  3. VFEND [Suspect]
     Indication: ILL-DEFINED DISORDER
     Dosage: SEE IMAGE
     Route: 048
     Dates: start: 20050910

REACTIONS (2)
  - BLOOD ALKALINE PHOSPHATASE INCREASED [None]
  - PYREXIA [None]
